FAERS Safety Report 5450319-0 (Version None)
Quarter: 2007Q3

REPORT INFORMATION
  Report Type: 
  Country: None (occurrence: None)
  Receive Date: 20070912
  Receipt Date: 20070903
  Transmission Date: 20080115
  Serious: Yes (Other)
  Sender: FDA-Public Use
  Company Number: JP-PFIZER INC-2007066083

PATIENT
  Age: 52 Year
  Sex: Female

DRUGS (4)
  1. ALDACTONE [Suspect]
     Route: 048
  2. EPADEL [Suspect]
     Route: 048
  3. METFORMIN HCL [Concomitant]
  4. NOVOLIN N [Concomitant]

REACTIONS (1)
  - GALACTORRHOEA [None]
